FAERS Safety Report 12644055 (Version 5)
Quarter: 2018Q1

REPORT INFORMATION
  Report Type: Spontaneous
  Country: US (occurrence: US)
  Receive Date: 20160811
  Receipt Date: 20180302
  Transmission Date: 20180508
  Serious: Yes (Life-Threatening, Hospitalization, Disabling, Other)
  Sender: FDA-Public Use
  Company Number: US-PFIZER INC-2016382205

PATIENT
  Age: 67 Year
  Sex: Female
  Weight: 105 kg

DRUGS (16)
  1. LANTUS [Concomitant]
     Active Substance: INSULIN GLARGINE
     Dosage: 7 IU, 2X/DAY
  2. NEURONTIN [Concomitant]
     Active Substance: GABAPENTIN
     Indication: NEURALGIA
     Dosage: 600 MG, 4X/DAY
  3. HUMALOG [Concomitant]
     Active Substance: INSULIN LISPRO
     Indication: DIABETES MELLITUS
     Dosage: 20 IU, 3X/DAY (BEFORE MEALS/BEFORE EACH MEAL PER SLIDING SCALE)
     Route: 058
  4. IRBESARTAN. [Concomitant]
     Active Substance: IRBESARTAN
     Indication: HYPERTENSION
     Dosage: 160 MG, 1X/DAY (EVERY MORNING)
  5. LASIX [Concomitant]
     Active Substance: FUROSEMIDE
     Indication: DIABETES MELLITUS
  6. LEVEMIR [Concomitant]
     Active Substance: INSULIN DETEMIR
     Indication: DIABETES MELLITUS
     Dosage: 30 IU, 2X/DAY
     Route: 058
  7. LATANOPROST. [Concomitant]
     Active Substance: LATANOPROST
     Indication: GLAUCOMA
     Dosage: 2 GTT, 1X/DAY (EVERY BED TIME)
     Route: 047
  8. XELJANZ [Suspect]
     Active Substance: TOFACITINIB CITRATE
     Dosage: 5 MG, 2X/DAY
     Route: 048
     Dates: start: 20170718
  9. CLONIDINE. [Concomitant]
     Active Substance: CLONIDINE
     Indication: HYPERTENSION
     Dosage: 0.2 MG, 3X/DAY
  10. LASIX [Concomitant]
     Active Substance: FUROSEMIDE
     Indication: SWELLING
     Dosage: 20 MG, 1X/DAY(EVERY MORNING)
     Route: 048
  11. XELJANZ [Suspect]
     Active Substance: TOFACITINIB CITRATE
     Indication: RHEUMATOID ARTHRITIS
     Dosage: 5 MG, 2X/DAY
     Route: 048
     Dates: start: 2016
  12. LASIX [Concomitant]
     Active Substance: FUROSEMIDE
     Indication: BLOOD PRESSURE INCREASED
  13. PREDNISONE. [Concomitant]
     Active Substance: PREDNISONE
     Indication: RHEUMATOID ARTHRITIS
     Dosage: 8 MG, 1X/DAY
  14. MS CONTIN [Concomitant]
     Active Substance: MORPHINE SULFATE
     Indication: PAIN
     Dosage: 30 MG, 2X/DAY (EVERY 12 HOURS)
  15. LANTUS [Concomitant]
     Active Substance: INSULIN GLARGINE
     Indication: DIABETES MELLITUS
     Dosage: 14 IU, 1X/DAY (AT BEDTIME)
  16. OXYCODONE [Concomitant]
     Active Substance: OXYCODONE
     Indication: BREAKTHROUGH PAIN
     Dosage: 10 MG, AS NEEDED (EVERY 4 HOURS)

REACTIONS (19)
  - Post procedural infection [Recovering/Resolving]
  - Localised infection [Recovering/Resolving]
  - Lumbar spinal stenosis [Unknown]
  - Gait disturbance [Not Recovered/Not Resolved]
  - Dysphagia [Unknown]
  - Pneumonia [Recovering/Resolving]
  - Intervertebral disc degeneration [Unknown]
  - Pain in extremity [Unknown]
  - Respiratory failure [Recovered/Resolved with Sequelae]
  - Muscle spasms [Not Recovered/Not Resolved]
  - Pleural effusion [Recovering/Resolving]
  - Peroneal nerve palsy [Not Recovered/Not Resolved]
  - Mutism [Unknown]
  - Body height decreased [Unknown]
  - Fall [Unknown]
  - Paralysis [Unknown]
  - Herpes zoster [Recovered/Resolved]
  - Deafness [Unknown]
  - Rheumatoid lung [Unknown]

NARRATIVE: CASE EVENT DATE: 2017
